FAERS Safety Report 21417773 (Version 3)
Quarter: 2024Q1

REPORT INFORMATION
  Report Type: Spontaneous
  Country: US (occurrence: US)
  Receive Date: 20221006
  Receipt Date: 20240313
  Transmission Date: 20240409
  Serious: No
  Sender: FDA-Public Use
  Company Number: US-PFIZER INC-202201206519

PATIENT
  Age: 85 Year
  Sex: Male

DRUGS (8)
  1. BRAFTOVI [Suspect]
     Active Substance: ENCORAFENIB
     Indication: Metastatic malignant melanoma
     Dosage: 12 PILLS A DAY OF BRAFTOVI AND MECTOVI
     Dates: start: 202204
  2. BRAFTOVI [Suspect]
     Active Substance: ENCORAFENIB
     Dosage: DOWN TO 8 PILLS OF BRAFTOVI AND MECTOVI
  3. BRAFTOVI [Suspect]
     Active Substance: ENCORAFENIB
     Dosage: DOWN TO 4 PILLSOF BRAFTOVI AND MECTOVI
  4. BRAFTOVI [Suspect]
     Active Substance: ENCORAFENIB
     Dosage: 75 MG
     Dates: start: 20220428
  5. MEKTOVI [Suspect]
     Active Substance: BINIMETINIB
     Indication: Metastatic malignant melanoma
     Dosage: 12 PILLS A DAY OF BRAFTOVI AND MECTOVI
     Dates: start: 202204
  6. MEKTOVI [Suspect]
     Active Substance: BINIMETINIB
     Dosage: DOWN TO 8 PILLSOF BRAFTOVI AND MECTOVI
  7. MEKTOVI [Suspect]
     Active Substance: BINIMETINIB
     Dosage: DOWN TO 4 PILLSOF BRAFTOVI AND MECTOVI
  8. MEKTOVI [Suspect]
     Active Substance: BINIMETINIB
     Dosage: 15 MG
     Dates: start: 20220428

REACTIONS (2)
  - Neoplasm progression [Unknown]
  - Pruritus [Unknown]

NARRATIVE: CASE EVENT DATE: 20220101
